FAERS Safety Report 5585073-5 (Version None)
Quarter: 2008Q1

REPORT INFORMATION
  Report Type: 
  Country: None (occurrence: None)
  Receive Date: 20080104
  Receipt Date: 20080104
  Transmission Date: 20080703
  Serious: Yes (Other)
  Sender: FDA-Public Use
  Company Number: None

PATIENT
  Sex: Female

DRUGS (1)
  1. BETASERON [Suspect]
     Indication: MULTIPLE SCLEROSIS
     Dosage: 0.3MG-1ML-  EVERY OTHER DAY  SQ  (DURATION: ABOUT A MONTH)
     Route: 058

REACTIONS (4)
  - ASTHENIA [None]
  - DIZZINESS [None]
  - EYE PAIN [None]
  - MALAISE [None]
